FAERS Safety Report 14354989 (Version 1)
Quarter: 2018Q1

REPORT INFORMATION
  Report Type: Report from Study
  Country: AR (occurrence: AR)
  Receive Date: 20180105
  Receipt Date: 20180105
  Transmission Date: 20180509
  Serious: Yes (Hospitalization)
  Sender: FDA-Public Use
  Company Number: PHHY2017AR198054

PATIENT
  Age: 45 Year
  Sex: Male

DRUGS (4)
  1. OMEPRAZOLE. [Concomitant]
     Active Substance: OMEPRAZOLE
     Indication: PRODUCT USED FOR UNKNOWN INDICATION
     Route: 065
  2. TRAMADOL. [Concomitant]
     Active Substance: TRAMADOL
     Indication: PRODUCT USED FOR UNKNOWN INDICATION
     Dosage: 1 DF, (EVERY 8 TO 12 HOURS)
     Route: 065
  3. COSENTYX [Suspect]
     Active Substance: SECUKINUMAB
     Indication: ANKYLOSING SPONDYLITIS
     Dosage: 150 MG, UNK
     Route: 065
     Dates: start: 20161124
  4. DICLOFENAC [Suspect]
     Active Substance: DICLOFENAC
     Indication: INFLAMMATION
     Dosage: UNK
     Route: 065

REACTIONS (5)
  - Device related infection [Not Recovered/Not Resolved]
  - Inflammation of wound [Recovering/Resolving]
  - Musculoskeletal discomfort [Unknown]
  - Osteomyelitis salmonella [Not Recovered/Not Resolved]
  - Pain [Unknown]
